FAERS Safety Report 14706433 (Version 2)
Quarter: 2018Q2

REPORT INFORMATION
  Report Type: Not Available
  Country: US (occurrence: US)
  Receive Date: 20180402
  Receipt Date: 20180426
  Transmission Date: 20180711
  Serious: Yes (Hospitalization)
  Sender: FDA-Public Use
  Company Number: US-NEUROCRINE BIOSCIENCES INC.-2018NBI00860

PATIENT
  Age: 58 Year
  Sex: Female

DRUGS (2)
  1. INGREZZA [Suspect]
     Active Substance: VALBENAZINE
     Indication: TARDIVE DYSKINESIA
     Route: 048
     Dates: start: 2018
  2. KLONOPIN [Concomitant]
     Active Substance: CLONAZEPAM
     Indication: TARDIVE DYSKINESIA

REACTIONS (3)
  - Feeding disorder [Not Recovered/Not Resolved]
  - Drug dose titration not performed [Unknown]
  - Gastrointestinal disorder [Not Recovered/Not Resolved]

NARRATIVE: CASE EVENT DATE: 201802
